FAERS Safety Report 9786226 (Version 3)
Quarter: 2014Q1

REPORT INFORMATION
  Report Type: Spontaneous
  Country: IT (occurrence: None)
  Receive Date: 20131224
  Receipt Date: 20140110
  Transmission Date: 20141002
  Serious: Yes (Death, Other)
  Sender: FDA-Public Use
  Company Number: AUR-APL-2013-10670

PATIENT
  Age: 45 Year
  Sex: Female

DRUGS (4)
  1. LEVOFLOXACIN [Suspect]
     Indication: PRODUCT USED FOR UNKNOWN INDICATION
     Dosage: 500 MG, 1 D, ORAL?
     Route: 048
     Dates: start: 20131119, end: 20131120
  2. ALLOPURINOL (ALLOPURINOL) (ALLOPURINOL) [Suspect]
     Indication: PRODUCT USED FOR UNKNOWN INDICATION
     Dosage: 300 MG, 1 D, ORAL
     Route: 048
     Dates: start: 20131104, end: 20131120
  3. PIPERACILLINA /TAZOBACTAM (PIP/TAZO) [Concomitant]
  4. METRONIDAZOLE (METRONIDAZOLE) [Concomitant]

REACTIONS (3)
  - Cirrhosis alcoholic [None]
  - Hepatitis alcoholic [None]
  - Toxic epidermal necrolysis [None]
